FAERS Safety Report 4289055-5 (Version None)
Quarter: 2004Q1

REPORT INFORMATION
  Report Type: 
  Country: None (occurrence: None)
  Receive Date: 20040209
  Receipt Date: 20020319
  Transmission Date: 20041129
  Serious: Yes (Disabling, Other)
  Sender: FDA-Public Use
  Company Number: WAES 0203USA02027

PATIENT
  Sex: Female
  Weight: 105 kg

DRUGS (5)
  1. PREMARIN [Concomitant]
     Dates: start: 20000101, end: 20030101
  2. MOTRIN [Concomitant]
     Dates: start: 20000101
  3. PROGESTERONE [Concomitant]
     Dates: start: 20000101, end: 20030101
  4. VIOXX [Suspect]
     Indication: MONARTHRITIS
     Route: 048
     Dates: start: 20001108, end: 20010101
  5. VIOXX [Suspect]
     Indication: OSTEOARTHRITIS
     Route: 048
     Dates: start: 20001108, end: 20010101

REACTIONS (8)
  - ANXIETY [None]
  - BLINDNESS [None]
  - EMOTIONAL DISTRESS [None]
  - MEDICATION ERROR [None]
  - SPONDYLITIS [None]
  - URINARY TRACT INFECTION [None]
  - VISION BLURRED [None]
  - VISUAL FIELD DEFECT [None]
